FAERS Safety Report 22297074 (Version 1)
Quarter: 2023Q2

REPORT INFORMATION
  Report Type: Spontaneous
  Country: DE (occurrence: DE)
  Receive Date: 20230509
  Receipt Date: 20230509
  Transmission Date: 20230721
  Serious: Yes (Life-Threatening, Hospitalization, Other)
  Sender: FDA-Public Use
  Company Number: DE-CADRBFARM-2023318340

PATIENT
  Age: 74 Year
  Sex: Male
  Weight: 100 kg

DRUGS (2)
  1. SIMVASTATIN [Suspect]
     Active Substance: SIMVASTATIN
     Indication: Coronary artery disease
     Dosage: 40 MILLIGRAM
     Route: 048
     Dates: end: 20230420
  2. SIMVASTATIN [Suspect]
     Active Substance: SIMVASTATIN
     Indication: Cardiac failure

REACTIONS (3)
  - Hepatic failure [Recovered/Resolved with Sequelae]
  - Renal failure [Not Recovered/Not Resolved]
  - Rhabdomyolysis [Recovered/Resolved with Sequelae]

NARRATIVE: CASE EVENT DATE: 20230420
